FAERS Safety Report 8992405 (Version 3)
Quarter: 2013Q2

REPORT INFORMATION
  Report Type: Report from Study
  Country: CA (occurrence: CA)
  Receive Date: 20121231
  Receipt Date: 20130606
  Transmission Date: 20140414
  Serious: Yes (Hospitalization)
  Sender: FDA-Public Use
  Company Number: CA-MERCK-1212CAN010932

PATIENT
  Age: 58 Year
  Sex: Male
  Weight: 89.4 kg

DRUGS (6)
  1. RIBAVIRIN [Suspect]
     Indication: CHRONIC HEPATITIS C
     Dosage: 600 MG, QD
     Route: 048
     Dates: start: 20120907
  2. RO5024048 [Suspect]
     Indication: CHRONIC HEPATITIS C
     Dosage: 1000 MG, BID
     Route: 048
     Dates: start: 20120907
  3. TELAPREVIR [Suspect]
     Indication: CHRONIC HEPATITIS C
     Dosage: 750 MG, TID
     Route: 048
     Dates: start: 20120907
  4. PEGINTERFERON ALFA-2A [Suspect]
     Indication: CHRONIC HEPATITIS C
     Dosage: 180 MICROGRAM, QW
     Route: 058
     Dates: start: 20120907
  5. NASONEX [Concomitant]
     Indication: NASAL CONGESTION
     Dosage: UNK
     Dates: start: 20120630
  6. NASONEX [Concomitant]
     Indication: EAR CONGESTION

REACTIONS (1)
  - Gastroenteritis viral [Recovered/Resolved]
